FAERS Safety Report 8682832 (Version 2)
Quarter: 2013Q1

REPORT INFORMATION
  Report Type: Spontaneous
  Country: US (occurrence: US)
  Receive Date: 20120725
  Receipt Date: 20130102
  Transmission Date: 20140127
  Serious: Yes (Hospitalization)
  Sender: FDA-Public Use
  Company Number: US-009507513-1207USA008767

PATIENT
  Sex: 0

DRUGS (1)
  1. NUVARING [Suspect]
     Indication: PRODUCT USED FOR UNKNOWN INDICATION
     Dosage: UNK
     Dates: start: 201110

REACTIONS (5)
  - Deep vein thrombosis [Unknown]
  - Local swelling [Unknown]
  - Depression [Unknown]
  - Anxiety [Unknown]
  - Coagulopathy [Unknown]
